FAERS Safety Report 24307709 (Version 1)
Quarter: 2024Q3

REPORT INFORMATION
  Report Type: Spontaneous
  Country: US (occurrence: None)
  Receive Date: 20240911
  Receipt Date: 20240911
  Transmission Date: 20241017
  Serious: Yes (Life-Threatening, Hospitalization)
  Sender: Public
  Company Number: None

PATIENT
  Age: 66 Year
  Sex: Female
  Weight: 81 kg

DRUGS (1)
  1. PLAVIX [Suspect]
     Active Substance: CLOPIDOGREL BISULFATE
     Indication: Peripheral artery thrombosis

REACTIONS (10)
  - Hypotension [None]
  - Eye haemorrhage [None]
  - Thrombosis [None]
  - Thrombotic thrombocytopenic purpura [None]
  - Fatigue [None]
  - Contusion [None]
  - Gastrointestinal haemorrhage [None]
  - Refusal of treatment by patient [None]
  - Hypoacusis [None]
  - Pain [None]

NARRATIVE: CASE EVENT DATE: 20240803
